FAERS Safety Report 4686740-8 (Version None)
Quarter: 2005Q2

REPORT INFORMATION
  Report Type: 
  Country: None (occurrence: None)
  Receive Date: 20050608
  Receipt Date: 20050601
  Transmission Date: 20051028
  Serious: Yes (Hospitalization)
  Sender: FDA-Public Use
  Company Number: 2005076560

PATIENT
  Age: 65 Year
  Sex: Male

DRUGS (1)
  1. ATORVASTATIN CALCIUM [Suspect]
     Indication: HYPERCHOLESTEROLAEMIA
     Dosage: ORAL
     Route: 048
     Dates: end: 20050401

REACTIONS (8)
  - BACK PAIN [None]
  - BILE DUCT OBSTRUCTION [None]
  - BILE DUCT STENOSIS [None]
  - CHOLANGITIS [None]
  - IATROGENIC INJURY [None]
  - JAUNDICE CHOLESTATIC [None]
  - PANCREATITIS [None]
  - SEPSIS [None]
